FAERS Safety Report 4400685-X (Version None)
Quarter: 2004Q3

REPORT INFORMATION
  Report Type: 
  Country: None (occurrence: None)
  Receive Date: 20040715
  Receipt Date: 20040715
  Transmission Date: 20050211
  Serious: Yes (Hospitalization)
  Sender: FDA-Public Use
  Company Number: None

PATIENT
  Age: 71 Year
  Sex: Female
  Weight: 90.9 kg

DRUGS (2)
  1. TAXOL [Suspect]
     Indication: SMALL CELL LUNG CANCER STAGE UNSPECIFIED
     Dosage: 80MG/M2 IV QWK
     Route: 048
     Dates: start: 20040531, end: 20040709
  2. NEURONTIN 60 MG PO TID [Suspect]
     Dosage: 600 MG PO TID
     Route: 048
     Dates: start: 20040601, end: 20040710

REACTIONS (4)
  - ASTHENIA [None]
  - FALL [None]
  - INFECTION [None]
  - PNEUMONIA [None]
